FAERS Safety Report 12473318 (Version 3)
Quarter: 2016Q4

REPORT INFORMATION
  Report Type: Spontaneous
  Country: BR (occurrence: BR)
  Receive Date: 20160616
  Receipt Date: 20161221
  Transmission Date: 20170207
  Serious: Yes (Hospitalization)
  Sender: FDA-Public Use
  Company Number: BR-B.I. PHARMACEUTICALS,INC./RIDGEFIELD-2016-BI-37885BR

PATIENT
  Age: 58 Year
  Sex: Male

DRUGS (4)
  1. SPIRIVA RESPIMAT [Suspect]
     Active Substance: TIOTROPIUM BROMIDE
     Indication: EMPHYSEMA
     Route: 050
     Dates: start: 2015, end: 201608
  2. FLORINEFE [Concomitant]
     Indication: HYPOTHYROIDISM
     Route: 048
     Dates: start: 201605
  3. RELVAR [Concomitant]
     Active Substance: FLUTICASONE FUROATE\VILANTEROL TRIFENATATE
     Indication: EMPHYSEMA
     Route: 048
     Dates: start: 2015
  4. AAS [Concomitant]
     Active Substance: ASPIRIN
     Indication: PRODUCT USED FOR UNKNOWN INDICATION
     Route: 065

REACTIONS (4)
  - Hypotension [Not Recovered/Not Resolved]
  - Product quality issue [Unknown]
  - Cardiac disorder [Not Recovered/Not Resolved]
  - Addison^s disease [Not Recovered/Not Resolved]

NARRATIVE: CASE EVENT DATE: 20160608
